FAERS Safety Report 10530757 (Version 1)
Quarter: 2014Q4

REPORT INFORMATION
  Report Type: Spontaneous
  Country: US (occurrence: None)
  Receive Date: 20141020
  Receipt Date: 20141020
  Transmission Date: 20150528
  Serious: Yes (Other)
  Sender: FDA-Public Use
  Company Number: None

PATIENT
  Age: 68 Year
  Weight: 90.72 kg

DRUGS (1)
  1. FINASTERIDE 5 MG [Suspect]
     Active Substance: FINASTERIDE
     Indication: BENIGN PROSTATIC HYPERPLASIA
     Dosage: 1 PILL PER DAY, TAKEN BY MOUTH
     Route: 048

REACTIONS (3)
  - Disorientation [None]
  - Depressed mood [None]
  - Disturbance in attention [None]

NARRATIVE: CASE EVENT DATE: 20141016
